FAERS Safety Report 6321619-7 (Version None)
Quarter: 2009Q3

REPORT INFORMATION
  Report Type: 
  Country: None (occurrence: None)
  Receive Date: 20090824
  Receipt Date: 20090817
  Transmission Date: 20100115
  Serious: Yes (Other)
  Sender: FDA-Public Use
  Company Number: US-BAYER-200930112NA

PATIENT
  Sex: Female

DRUGS (2)
  1. NEXAVAR [Suspect]
     Indication: RENAL CELL CARCINOMA
     Dosage: TOTAL DAILY DOSE: 800 MG  UNIT DOSE: 200 MG
     Route: 048
     Dates: start: 20090501, end: 20090101
  2. NEXAVAR [Suspect]
     Dosage: AS USED: 400-300 MG  UNIT DOSE: 200 MG
     Route: 048
     Dates: start: 20090101

REACTIONS (1)
  - INTRAOCULAR PRESSURE INCREASED [None]
